FAERS Safety Report 14638550 (Version 4)
Quarter: 2018Q3

REPORT INFORMATION
  Report Type: Spontaneous
  Country: JP (occurrence: JP)
  Receive Date: 20180314
  Receipt Date: 20180907
  Transmission Date: 20181010
  Serious: Yes (Other)
  Sender: FDA-Public Use
  Company Number: JP-009507513-1802JPN008593

PATIENT
  Age: 74 Year
  Sex: Male

DRUGS (19)
  1. RANMARK [Concomitant]
     Active Substance: DENOSUMAB
     Dosage: UNK
  2. GLIMEPIRIDE. [Concomitant]
     Active Substance: GLIMEPIRIDE
     Dosage: UNK
  3. G LASTA [Concomitant]
     Active Substance: PEGFILGRASTIM
  4. SITAGLIPTIN PHOSPHATE [Suspect]
     Active Substance: SITAGLIPTIN PHOSPHATE
     Indication: TYPE 2 DIABETES MELLITUS
     Dosage: UNK
     Route: 048
  5. AMOXICILLIN. [Concomitant]
     Active Substance: AMOXICILLIN
  6. OPDIVO [Suspect]
     Active Substance: NIVOLUMAB
     Dosage: 173 MG, QD (STRENGTH REPORTED AS 20MG, 100MG)
     Route: 041
     Dates: start: 20161222, end: 20161222
  7. DEBERZA [Concomitant]
     Active Substance: TOFOGLIFLOZIN
     Dosage: UNK
  8. DENOTAS CHEWABLE COMBINATION TABLETS [Concomitant]
     Active Substance: CALCIUM CARBONATE\CHOLECALCIFEROL\MAGNESIUM CARBONATE
     Dosage: UNK
  9. PRAVASTATIN SODIUM. [Concomitant]
     Active Substance: PRAVASTATIN SODIUM
  10. METFORMIN [Concomitant]
     Active Substance: METFORMIN HYDROCHLORIDE
     Dosage: UNK
  11. OPDIVO [Suspect]
     Active Substance: NIVOLUMAB
     Indication: NON-SMALL CELL LUNG CANCER RECURRENT
     Dosage: 173 MG, QD (STRENGTH REPORTED AS 20MG, 100MG)
     Route: 041
     Dates: start: 20161124, end: 20161124
  12. DOCETAXEL. [Suspect]
     Active Substance: DOCETAXEL
     Indication: NON-SMALL CELL LUNG CANCER RECURRENT
     Dosage: UNK
     Route: 041
     Dates: start: 20170309, end: 20170713
  13. DIGOSIN [Concomitant]
     Active Substance: DIGOXIN
     Dosage: UNK
  14. CODEINE PHOSPHATE [Concomitant]
     Active Substance: CODEINE PHOSPHATE
     Dosage: UNK
  15. HIRUDOID [Concomitant]
     Active Substance: GLYCOSAMINOGLYCANS
  16. OPDIVO [Suspect]
     Active Substance: NIVOLUMAB
     Dosage: 173 MG, QD (STRENGTH REPORTED AS 20MG, 100MG)
     Route: 041
     Dates: start: 20161208, end: 20161208
  17. AMLODIPINE [Concomitant]
     Active Substance: AMLODIPINE BESYLATE
     Dosage: UNK
  18. LIPIDIL [Concomitant]
     Active Substance: FENOFIBRATE
  19. LANSOPRAZOLE. [Concomitant]
     Active Substance: LANSOPRAZOLE

REACTIONS (6)
  - Febrile neutropenia [Recovered/Resolved]
  - Neutrophil count decreased [Recovered/Resolved]
  - White blood cell count decreased [Recovered/Resolved]
  - Myositis [Recovered/Resolved]
  - Nail discolouration [Recovered/Resolved]
  - Neuropathy peripheral [Recovered/Resolved]

NARRATIVE: CASE EVENT DATE: 20170105
